FAERS Safety Report 25539278 (Version 1)
Quarter: 2025Q3

REPORT INFORMATION
  Report Type: Spontaneous
  Country: US (occurrence: None)
  Receive Date: 20250709
  Receipt Date: 20250709
  Transmission Date: 20251020
  Serious: Yes (Other)
  Sender: FDA-CTU
  Company Number: None

PATIENT
  Age: 70 Year
  Sex: Female

DRUGS (1)
  1. RINVOQ [Suspect]
     Active Substance: UPADACITINIB
     Dosage: FREQUENCY : DAILY;?

REACTIONS (9)
  - Arthritis infective [None]
  - Arthropathy [None]
  - Joint swelling [None]
  - Arthralgia [None]
  - Weight bearing difficulty [None]
  - Rheumatoid arthritis [None]
  - Staphylococcal infection [None]
  - Fatigue [None]
  - Pyrexia [None]
